FAERS Safety Report 5450647-9 (Version None)
Quarter: 2007Q3

REPORT INFORMATION
  Report Type: 
  Country: None (occurrence: None)
  Receive Date: 20070910
  Receipt Date: 20070831
  Transmission Date: 20080115
  Serious: Yes (Other)
  Sender: FDA-Public Use
  Company Number: 2007SP017706

PATIENT
  Age: 51 Year
  Sex: Male

DRUGS (2)
  1. INTRON A [Suspect]
     Indication: HEPATITIS C
     Dates: start: 19980101
  2. RIBAVIRIN [Suspect]
     Indication: HEPATITIS C
     Dosage: ; PO
     Route: 048
     Dates: start: 19980101

REACTIONS (4)
  - DIALYSIS [None]
  - LIVER TRANSPLANT [None]
  - RENAL FAILURE [None]
  - RENAL TRANSPLANT [None]
